FAERS Safety Report 18161190 (Version 3)
Quarter: 2021Q1

REPORT INFORMATION
  Report Type: Spontaneous
  Country: BE (occurrence: BE)
  Receive Date: 20200818
  Receipt Date: 20210115
  Transmission Date: 20210419
  Serious: Yes (Other)
  Sender: FDA-Public Use
  Company Number: BE-PFIZER INC-2020315949

PATIENT
  Age: 50 Year
  Sex: Male

DRUGS (12)
  1. ROCURONIUM BROMIDE. [Suspect]
     Active Substance: ROCURONIUM BROMIDE
     Indication: COVID-19
     Dosage: UNK, AT ADMISSION
  2. CEFUROXIME. [Suspect]
     Active Substance: CEFUROXIME
     Indication: COVID-19
     Dosage: UNK, 6 DAYS BEFORE
  3. AZITHROMYCIN ANHYDROUS. [Suspect]
     Active Substance: AZITHROMYCIN ANHYDROUS
     Indication: COVID-19
     Dosage: UNK
  4. CLONIDINE. [Suspect]
     Active Substance: CLONIDINE
     Indication: COVID-19
     Dosage: UNK, AT ADMISSION
  5. PANTOPRAZOLE [Suspect]
     Active Substance: PANTOPRAZOLE
     Indication: COVID-19
     Dosage: UNK, 9 DAYS BEFORE
  6. SEVOFLURANE. [Suspect]
     Active Substance: SEVOFLURANE
     Indication: COVID-19
     Dosage: UNK, 8 DAYS BEFORE
  7. NOREPINEPHRINE BITARTRATE. [Suspect]
     Active Substance: NOREPINEPHRINE BITARTRATE
     Indication: COVID-19
     Dosage: UNK, AT ADMISSION
  8. HYDROXYCHLOROQUINE [Suspect]
     Active Substance: HYDROXYCHLOROQUINE
     Indication: COVID-19
     Dosage: UNK
  9. PROPOFOL. [Suspect]
     Active Substance: PROPOFOL
     Indication: COVID-19
     Dosage: UNK, AT ADMISSION
  10. HEPARIN [Suspect]
     Active Substance: HEPARIN SODIUM
     Indication: COVID-19
     Dosage: UNK, AT ADMISSION
  11. FLUCLOXACILLIN SODIUM [Suspect]
     Active Substance: FLUCLOXACILLIN SODIUM
     Indication: COVID-19
     Dosage: UNK, 4 DAYS BEFORE
  12. SUFENTANIL [Suspect]
     Active Substance: SUFENTANIL
     Indication: COVID-19
     Dosage: UNK, AT ADMISSION

REACTIONS (3)
  - Drug effective for unapproved indication [Unknown]
  - Drug reaction with eosinophilia and systemic symptoms [Recovered/Resolved]
  - Off label use [Unknown]
